FAERS Safety Report 22623137 (Version 1)
Quarter: 2023Q2

REPORT INFORMATION
  Report Type: Spontaneous
  Country: US (occurrence: US)
  Receive Date: 20230621
  Receipt Date: 20230621
  Transmission Date: 20230722
  Serious: Yes (Life-Threatening, Hospitalization, Other)
  Sender: FDA-Public Use
  Company Number: US-drreddys-SPO/USA/23/0167208

PATIENT
  Age: 53 Year
  Sex: Female

DRUGS (2)
  1. OXYCODONE [Suspect]
     Active Substance: OXYCODONE
     Indication: Pain management
  2. OXYCODONE [Suspect]
     Active Substance: OXYCODONE
     Dosage: DOSE REDUCED

REACTIONS (6)
  - Mental status changes [Recovering/Resolving]
  - Hyperventilation [Unknown]
  - Alkalosis [Unknown]
  - Drug withdrawal syndrome [Recovering/Resolving]
  - Chills [Unknown]
  - Nausea [Unknown]
